FAERS Safety Report 23949604 (Version 1)
Quarter: 2024Q2

REPORT INFORMATION
  Report Type: Spontaneous
  Country: US (occurrence: US)
  Receive Date: 20240607
  Receipt Date: 20240607
  Transmission Date: 20240716
  Serious: Yes (Other)
  Sender: FDA-Public Use
  Company Number: US-JNJFOC-20240589848

PATIENT

DRUGS (2)
  1. TECVAYLI [Suspect]
     Active Substance: TECLISTAMAB-CQYV
     Indication: Product used for unknown indication
     Dosage: STEP UP DOSE
     Route: 058
  2. TECVAYLI [Suspect]
     Active Substance: TECLISTAMAB-CQYV
     Dosage: MAINTENANCE DOSE
     Route: 058

REACTIONS (2)
  - Immune effector cell-associated neurotoxicity syndrome [Unknown]
  - Mental disorder [Unknown]
